FAERS Safety Report 9925068 (Version 2)
Quarter: 2014Q1

REPORT INFORMATION
  Report Type: Spontaneous
  Country: US (occurrence: US)
  Receive Date: 20140226
  Receipt Date: 20140226
  Transmission Date: 20141002
  Serious: Yes (Other)
  Sender: FDA-Public Use
  Company Number: US-NOVEN-14US008908

PATIENT
  Age: 51 Year
  Sex: Female

DRUGS (3)
  1. MINIVELLE [Suspect]
     Indication: PRODUCT USED FOR UNKNOWN INDICATION
     Dosage: 0.1 MG/DAY, UNK
     Route: 062
  2. CHEMOTHERAPEUTICS [Concomitant]
     Indication: NASOPHARYNGEAL CANCER
  3. LAMICTAL [Concomitant]
     Indication: EPILEPSY

REACTIONS (4)
  - Nasopharyngeal cancer [Not Recovered/Not Resolved]
  - Migraine [Not Recovered/Not Resolved]
  - Incorrect drug administration duration [Not Recovered/Not Resolved]
  - Product quality issue [Not Recovered/Not Resolved]
